FAERS Safety Report 8828060 (Version 2)
Quarter: 2013Q2

REPORT INFORMATION
  Report Type: Spontaneous
  Country: US (occurrence: US)
  Receive Date: 20121008
  Receipt Date: 20121031
  Transmission Date: 20140414
  Serious: Yes (Other)
  Sender: FDA-Public Use
  Company Number: PHEH2012US009747

PATIENT
  Sex: Female

DRUGS (1)
  1. GILENYA (FTY) CAPSULE [Suspect]
     Route: 048
     Dates: start: 201110

REACTIONS (9)
  - Liver injury [Recovered/Resolved]
  - Transaminases increased [Recovered/Resolved]
  - Joint swelling [Unknown]
  - Joint stiffness [Not Recovered/Not Resolved]
  - Increased tendency to bruise [Unknown]
  - Balance disorder [Unknown]
  - Dysarthria [Unknown]
  - Insomnia [Unknown]
  - Arthralgia [Unknown]
